FAERS Safety Report 9170402 (Version 3)
Quarter: 2013Q2

REPORT INFORMATION
  Report Type: Spontaneous
  Country: GB (occurrence: None)
  Receive Date: 20130311
  Receipt Date: 20130627
  Transmission Date: 20140414
  Serious: Yes (Other)
  Sender: FDA-Public Use
  Company Number: KAD201303-000288

PATIENT
  Age: 42 Year
  Sex: Male

DRUGS (8)
  1. RIBAVIRIN [Suspect]
     Indication: HEPATIC FIBROSIS
     Dates: start: 201208
  2. CLOZARIL [Suspect]
     Indication: SCHIZOPHRENIA
     Route: 048
     Dates: start: 20080806
  3. PEGYLATED INTERFERON ALFA-2A [Suspect]
     Indication: HEPATIC FIBROSIS
     Dates: start: 201208
  4. GABAPENTIN (GABAPENTIN) [Concomitant]
  5. LANSOPRAZOLE (LANSOPRAZOLE) [Concomitant]
  6. SUBOXONE [Concomitant]
  7. ZOPICLONE [Concomitant]
  8. INTERFERON (INTERFERON) [Concomitant]

REACTIONS (6)
  - Chronic hepatitis C [None]
  - Hepatic fibrosis [None]
  - Platelet count decreased [None]
  - White blood cell count decreased [None]
  - Neutrophil count decreased [None]
  - Condition aggravated [None]
